FAERS Safety Report 22286756 (Version 3)
Quarter: 2023Q2

REPORT INFORMATION
  Report Type: Report from Study
  Country: TR (occurrence: None)
  Receive Date: 20230505
  Receipt Date: 20230510
  Transmission Date: 20230721
  Serious: Yes (Hospitalization)
  Sender: FDA-Public Use
  Company Number: TR-ROCHE-3343576

PATIENT
  Age: 69 Year
  Sex: Male
  Weight: 73 kg

DRUGS (13)
  1. RITUXIMAB [Suspect]
     Active Substance: RITUXIMAB
     Indication: Diffuse large B-cell lymphoma
     Dosage: DOSE OF LAST RITUXIMAB ADMINISTERED PRIOR TO AE ONSET: 686 MG?DATE OF MOST RECENT DOSE OF RITUXIMAB
     Route: 041
     Dates: start: 20230227
  2. GEMCITABINE [Suspect]
     Active Substance: GEMCITABINE
     Indication: Diffuse large B-cell lymphoma
     Dosage: DOSE OF LAST GEMCITABINE ADMINISTERED PRIOR TO AE ONSET: 1830 MG?DATE OF MOST RECENT DOSE OF GEMCITA
     Route: 042
     Dates: start: 20230228
  3. OXALIPLATIN [Suspect]
     Active Substance: OXALIPLATIN
     Indication: Diffuse large B-cell lymphoma
     Dosage: DOSE OF LAST OXALIPLATIN ADMINISTERED PRIOR TO AE ONSET: 183 MG?DATE OF MOST RECENT DOSE OF OXALIPLA
     Route: 042
  4. FRAVEN [Concomitant]
     Route: 058
     Dates: start: 20230228, end: 20230228
  5. FRAVEN [Concomitant]
     Route: 058
     Dates: start: 20230306, end: 20230310
  6. FRAVEN [Concomitant]
     Route: 058
     Dates: start: 20230418, end: 20230422
  7. PHENIRAMINE [Concomitant]
     Active Substance: PHENIRAMINE
     Route: 042
     Dates: start: 20230227
  8. ONZYD [Concomitant]
     Route: 048
     Dates: start: 20230228
  9. FORTEVIR [Concomitant]
     Route: 048
     Dates: start: 20230228
  10. BACTRIM [Concomitant]
     Active Substance: SULFAMETHOXAZOLE\TRIMETHOPRIM
     Route: 048
     Dates: start: 20230228
  11. PAROL [Concomitant]
     Active Substance: ACETAMINOPHEN
     Route: 048
     Dates: start: 20230227
  12. ACYCLOVIR [Concomitant]
     Active Substance: ACYCLOVIR
     Route: 048
     Dates: start: 20230228
  13. ONDANSETRON HYDROCHLORIDE [Concomitant]
     Active Substance: ONDANSETRON HYDROCHLORIDE
     Route: 042
     Dates: start: 20230228

REACTIONS (1)
  - Platelet count decreased [Recovered/Resolved]

NARRATIVE: CASE EVENT DATE: 20230502
